FAERS Safety Report 9052593 (Version 2)
Quarter: 2014Q1

REPORT INFORMATION
  Report Type: Spontaneous
  Country: US (occurrence: US)
  Receive Date: 20130207
  Receipt Date: 20140206
  Transmission Date: 20141002
  Serious: Yes (Hospitalization)
  Sender: FDA-Public Use
  Company Number: US-B.I. PHARMACEUTICALS,INC./RIDGEFIELD-2011-BP-22422BP

PATIENT
  Sex: Male
  Weight: 88.45 kg

DRUGS (8)
  1. PRADAXA [Suspect]
     Indication: ATRIAL FIBRILLATION
     Dosage: 300 MG
     Route: 048
     Dates: start: 20110301, end: 20110510
  2. PRADAXA [Suspect]
     Indication: ANTICOAGULANT THERAPY
     Dosage: 300 MG
     Route: 048
     Dates: start: 20110913, end: 201110
  3. CELEBREX [Concomitant]
     Indication: ARTHRITIS
     Dates: start: 201109
  4. MOBIC [Concomitant]
     Indication: ARTHRITIS
     Dosage: 15 MG
     Route: 048
     Dates: end: 201109
  5. SIMVASTATIN [Concomitant]
  6. ASPIRIN [Concomitant]
     Indication: ATRIAL FIBRILLATION
     Dosage: 81 MG
     Route: 048
     Dates: end: 20110510
  7. METOPROLOL [Concomitant]
     Dosage: 50 MG
     Route: 048
  8. LOSARTAN AND HYDROCHLOROTHIAZIDE [Concomitant]
     Route: 048

REACTIONS (2)
  - Upper gastrointestinal haemorrhage [Unknown]
  - Gastric ulcer [Recovered/Resolved]
